FAERS Safety Report 22932828 (Version 3)
Quarter: 2024Q4

REPORT INFORMATION
  Report Type: Spontaneous
  Country: BR (occurrence: BR)
  Receive Date: 20230912
  Receipt Date: 20241007
  Transmission Date: 20250114
  Serious: No
  Sender: AMGEN
  Company Number: BR-AMGEN-BRASP2023152815

PATIENT

DRUGS (2)
  1. PEGFILGRASTIM [Suspect]
     Active Substance: PEGFILGRASTIM
     Indication: Product used for unknown indication
     Dosage: 0.6 MILLILITER, (10 MG/ML SOL INJ CT SER FILL VD TRANS X 0.6 ML)
     Route: 058
  2. PEGFILGRASTIM [Suspect]
     Active Substance: PEGFILGRASTIM
     Dosage: 0.6 MILLILITER, (10 MG/ML SOL INJ CT SER FILL VD TRANS X 0.6 ML)
     Route: 058

REACTIONS (1)
  - Device issue [Unknown]

NARRATIVE: CASE EVENT DATE: 20230624
